APPROVED DRUG PRODUCT: METHYLNALTREXONE BROMIDE
Active Ingredient: METHYLNALTREXONE BROMIDE
Strength: 12MG/0.6ML (12MG/0.6ML)
Dosage Form/Route: SOLUTION;SUBCUTANEOUS
Application: A208112 | Product #002
Applicant: ACTAVIS LLC
Approved: Aug 26, 2024 | RLD: No | RS: No | Type: DISCN